FAERS Safety Report 13792921 (Version 2)
Quarter: 2018Q3

REPORT INFORMATION
  Report Type: Report from Study
  Country: CA (occurrence: CA)
  Receive Date: 20170726
  Receipt Date: 20180814
  Transmission Date: 20181010
  Serious: Yes (Other)
  Sender: FDA-Public Use
  Company Number: CA-BRISTOL-MYERS SQUIBB COMPANY-BMS-2017-058493

PATIENT
  Age: 74 Year
  Sex: Female

DRUGS (1)
  1. ABATACEPT [Suspect]
     Active Substance: ABATACEPT
     Indication: RHEUMATOID ARTHRITIS
     Dosage: 750 MG, Q4WK
     Route: 042

REACTIONS (5)
  - Tachycardia [Recovered/Resolved]
  - Hypertension [Unknown]
  - Lung infection [Unknown]
  - Respiratory tract congestion [Unknown]
  - Productive cough [Unknown]

NARRATIVE: CASE EVENT DATE: 20170626
